FAERS Safety Report 23992872 (Version 2)
Quarter: 2024Q3

REPORT INFORMATION
  Report Type: Spontaneous
  Country: US (occurrence: US)
  Receive Date: 20240620
  Receipt Date: 20240705
  Transmission Date: 20241016
  Serious: No
  Sender: AMGEN
  Company Number: US-AMGEN-USASP2024117653

PATIENT
  Age: 66 Year
  Sex: Female
  Weight: 56.9 kg

DRUGS (2)
  1. NEULASTA [Suspect]
     Active Substance: PEGFILGRASTIM
     Indication: Prophylaxis
     Dosage: UNK, AFTER CHEMO, FOLLOWING CHEMOTHERAPY
     Route: 065
  2. NEULASTA [Suspect]
     Active Substance: PEGFILGRASTIM
     Dosage: UNK, AFTER CHEMO, FOLLOWING CHEMOTHERAPY
     Route: 065

REACTIONS (2)
  - Intercepted product preparation error [Unknown]
  - Device power source issue [Unknown]

NARRATIVE: CASE EVENT DATE: 20240612
